FAERS Safety Report 5024281-9 (Version None)
Quarter: 2006Q2

REPORT INFORMATION
  Report Type: 
  Country: None (occurrence: None)
  Receive Date: 20060607
  Receipt Date: 20060524
  Transmission Date: 20061013
  Serious: Yes (Death, Life-Threatening, Other)
  Sender: FDA-Public Use
  Company Number: 2006009134

PATIENT
  Age: 79 Year
  Sex: Female
  Weight: 86 kg

DRUGS (3)
  1. VFEND [Suspect]
     Indication: CANDIDIASIS
     Dosage: 700 MG (350 MG, 1 IN 12 HR), INTRAVENOUS
     Route: 042
  2. CORDARONE [Suspect]
     Indication: ILL-DEFINED DISORDER
  3. AMIODARONE HCL [Concomitant]

REACTIONS (3)
  - DRUG INTERACTION [None]
  - MULTI-ORGAN FAILURE [None]
  - TORSADE DE POINTES [None]
